FAERS Safety Report 8862039 (Version 1)
Quarter: 2012Q4

REPORT INFORMATION
  Report Type: 
  Country: US (occurrence: US)
  Receive Date: 20121025
  Receipt Date: 20121025
  Transmission Date: 20130627
  Serious: No
  Sender: FDA-Public Use
  Company Number: US-TARO-2012P1049697

PATIENT
  Age: 70 Year
  Sex: Male
  Weight: 74.84 kg

DRUGS (1)
  1. CLOTRIMAZOLE [Suspect]
     Indication: TINEA PEDIS
     Dates: start: 20120618, end: 20120708

REACTIONS (1)
  - Drug ineffective [Unknown]
